FAERS Safety Report 7333505-4 (Version None)
Quarter: 2011Q1

REPORT INFORMATION
  Report Type: 
  Country: None (occurrence: None)
  Receive Date: 20110304
  Receipt Date: 20110225
  Transmission Date: 20110831
  Serious: Yes (Other)
  Sender: FDA-Public Use
  Company Number: US-AMGEN-USASP2011009309

PATIENT
  Age: 55 Year
  Sex: Female

DRUGS (5)
  1. ENBREL [Suspect]
     Indication: PSORIATIC ARTHROPATHY
     Dosage: 50 MG, QWK
     Route: 058
     Dates: start: 20070301, end: 20101207
  2. PROTONIX [Concomitant]
  3. ENBREL [Suspect]
     Indication: PSORIASIS
  4. DIOVAN [Concomitant]
  5. MOBIC [Concomitant]

REACTIONS (2)
  - NODULE [None]
  - MALIGNANT MELANOMA [None]
